FAERS Safety Report 6225947-5 (Version None)
Quarter: 2009Q2

REPORT INFORMATION
  Report Type: 
  Country: None (occurrence: None)
  Receive Date: 20090612
  Receipt Date: 20090513
  Transmission Date: 20091009
  Serious: No
  Sender: FDA-Public Use
  Company Number: US-ABBOTT-09P-163-0571761-00

PATIENT
  Sex: Male
  Weight: 74.91 kg

DRUGS (5)
  1. HUMIRA [Suspect]
     Indication: ANKYLOSING SPONDYLITIS
     Route: 058
     Dates: start: 20090321
  2. HUMIRA [Suspect]
     Indication: PSORIATIC ARTHROPATHY
  3. METHOTREXATE [Suspect]
     Indication: ANKYLOSING SPONDYLITIS
     Dosage: 60 OTHER
     Route: 058
  4. METHOTREXATE [Suspect]
     Indication: PSORIATIC ARTHROPATHY
  5. VYANESE [Concomitant]
     Indication: ATTENTION DEFICIT/HYPERACTIVITY DISORDER

REACTIONS (7)
  - BONE PAIN [None]
  - CREPITATIONS [None]
  - DRUG EFFECT DECREASED [None]
  - DRUG INEFFECTIVE [None]
  - FATIGUE [None]
  - NAUSEA [None]
  - PAIN IN EXTREMITY [None]
